FAERS Safety Report 18661960 (Version 1)
Quarter: 2020Q4

REPORT INFORMATION
  Report Type: Report from Study
  Country: US (occurrence: US)
  Receive Date: 20201224
  Receipt Date: 20201224
  Transmission Date: 20210114
  Serious: Yes (Other)
  Sender: FDA-Public Use
  Company Number: US-TAKEDA-2014BAX057887

PATIENT
  Sex: Female
  Weight: 92.97 kg

DRUGS (18)
  1. BENADRYL ALLERGY [CETIRIZINE HYDROCHLORIDE] [Concomitant]
     Active Substance: CETIRIZINE HYDROCHLORIDE
  2. LEXAPRO [Concomitant]
     Active Substance: ESCITALOPRAM OXALATE
  3. HUMAN NORMAL IMMUNOGLOBULIN; LIQUID [Suspect]
     Active Substance: HUMAN IMMUNOGLOBULIN G
     Indication: MYASTHENIA GRAVIS
     Dosage: 60GRAMEVERY 4 WK
     Route: 042
  4. FORTEO [Concomitant]
     Active Substance: TERIPARATIDE
  5. BACTRIM [Concomitant]
     Active Substance: SULFAMETHOXAZOLE\TRIMETHOPRIM
  6. PREDNISONE. [Concomitant]
     Active Substance: PREDNISONE
  7. HUMAN NORMAL IMMUNOGLOBULIN; LIQUID [Suspect]
     Active Substance: HUMAN IMMUNOGLOBULIN G
     Dosage: 60 GRAM,DAILY FOR 3 DAYS, Q6W
     Route: 042
     Dates: start: 20140423
  8. WELLBUTRIN [Concomitant]
     Active Substance: BUPROPION HYDROCHLORIDE
  9. LIDOCAINE/PRILOCAINE [Concomitant]
     Active Substance: LIDOCAINE\PRILOCAINE
  10. CARBAMAZEPINE. [Concomitant]
     Active Substance: CARBAMAZEPINE
  11. SODIUM CHLORIDE. [Concomitant]
     Active Substance: SODIUM CHLORIDE
  12. EPINEPHRINE. [Concomitant]
     Active Substance: EPINEPHRINE
  13. IMURAN [Concomitant]
     Active Substance: AZATHIOPRINE
  14. MULTIVITAMINS [VITAMINS NOS] [Concomitant]
     Active Substance: VITAMINS
  15. HEPARIN [Concomitant]
     Active Substance: HEPARIN SODIUM
  16. MESTINON [Concomitant]
     Active Substance: PYRIDOSTIGMINE BROMIDE
  17. LISINOPRIL. [Concomitant]
     Active Substance: LISINOPRIL
  18. DIPHENHYDRAMINE. [Concomitant]
     Active Substance: DIPHENHYDRAMINE

REACTIONS (2)
  - Hypertension [Unknown]
  - Inappropriate schedule of product administration [Unknown]
